FAERS Safety Report 5604142-4 (Version None)
Quarter: 2008Q1

REPORT INFORMATION
  Report Type: 
  Country: None (occurrence: None)
  Receive Date: 20080123
  Receipt Date: 20080123
  Transmission Date: 20080703
  Serious: No
  Sender: FDA-Public Use
  Company Number: None

PATIENT
  Age: 35 Year
  Sex: Male
  Weight: 117.9352 kg

DRUGS (2)
  1. ZOLOFT [Suspect]
     Indication: DEPRESSION
     Dosage: 300MG DAILY PO
     Route: 048
     Dates: start: 20030401, end: 20040101
  2. SERTRALINE [Suspect]
     Dosage: 300MG DAILY PO
     Route: 048
     Dates: start: 20040101

REACTIONS (1)
  - HEADACHE [None]
